FAERS Safety Report 5158725-9 (Version None)
Quarter: 2006Q4

REPORT INFORMATION
  Report Type: 
  Country: None (occurrence: None)
  Receive Date: 20061128
  Receipt Date: 20061110
  Transmission Date: 20070319
  Serious: Yes (Life-Threatening, Other)
  Sender: FDA-Public Use
  Company Number: GB-GLAXOSMITHKLINE-B0446135A

PATIENT
  Age: 66 Year
  Sex: Male
  Weight: 64 kg

DRUGS (4)
  1. AUGMENTIN '125' [Suspect]
     Dosage: 375MG THREE TIMES PER DAY
     Route: 048
     Dates: start: 20061027, end: 20061108
  2. ASPIRIN [Concomitant]
     Dosage: 75MG PER DAY
     Route: 048
     Dates: start: 20021114
  3. CETIRIZINE HCL [Concomitant]
     Dosage: 10MG PER DAY
     Route: 048
     Dates: start: 20061027, end: 20061110
  4. EZETIMIBE [Concomitant]
     Dosage: 10MG PER DAY
     Route: 048
     Dates: start: 20060321, end: 20061110

REACTIONS (5)
  - ABDOMINAL PAIN [None]
  - ANOREXIA [None]
  - JAUNDICE CHOLESTATIC [None]
  - NAUSEA [None]
  - PYREXIA [None]
